FAERS Safety Report 4816414-1 (Version None)
Quarter: 2005Q4

REPORT INFORMATION
  Report Type: 
  Country: None (occurrence: None)
  Receive Date: 20051028
  Receipt Date: 20051014
  Transmission Date: 20060501
  Serious: Yes (Other)
  Sender: FDA-Public Use
  Company Number: S05-GER-03563-01

PATIENT
  Age: 20 Year
  Sex: Male

DRUGS (1)
  1. ESCITALOPRAM OXALATE [Suspect]
     Indication: ANXIETY DISORDER
     Dosage: 5 MG PO
     Route: 048
     Dates: start: 20050820, end: 20050823

REACTIONS (1)
  - BLOOD CREATINE PHOSPHOKINASE INCREASED [None]
